FAERS Safety Report 9154388 (Version 2)
Quarter: 2013Q1

REPORT INFORMATION
  Report Type: Spontaneous
  Country: US (occurrence: US)
  Receive Date: 20130311
  Receipt Date: 20130318
  Transmission Date: 20140127
  Serious: No
  Sender: FDA-Public Use
  Company Number: US-009507513-1303USA003477

PATIENT
  Sex: Female

DRUGS (11)
  1. JANUVIA [Suspect]
     Indication: TYPE 2 DIABETES MELLITUS
     Dosage: 1 DF, QD
     Route: 048
     Dates: start: 201303
  2. LANTUS [Concomitant]
  3. GLIPIZIDE XL [Concomitant]
  4. ESCITALOPRAM [Concomitant]
  5. EXFORGE HCT [Concomitant]
  6. POTASSIUM (UNSPECIFIED) [Concomitant]
  7. INDOMETHACIN [Concomitant]
  8. CLOPIDOGREL [Concomitant]
  9. FUROSEMIDE [Concomitant]
  10. ASPIRIN [Concomitant]
  11. CRESTOR [Suspect]

REACTIONS (2)
  - Medication residue present [Unknown]
  - Drug ineffective [Unknown]
